FAERS Safety Report 9555329 (Version 2)
Quarter: 2013Q4

REPORT INFORMATION
  Report Type: Spontaneous
  Country: FR (occurrence: FR)
  Receive Date: 20130926
  Receipt Date: 20131016
  Transmission Date: 20140711
  Serious: Yes (Other)
  Sender: FDA-Public Use
  Company Number: FR-JNJFOC-20130913553

PATIENT
  Age: 61 Year
  Sex: Male
  Weight: 71 kg

DRUGS (4)
  1. PREZISTA [Suspect]
     Indication: HIV INFECTION
     Route: 048
     Dates: start: 20101230
  2. NORVIR [Suspect]
     Indication: HIV INFECTION
     Route: 048
  3. VIDEX [Concomitant]
     Indication: HIV INFECTION
     Route: 048
     Dates: start: 20060101, end: 20130621
  4. AVODART [Concomitant]
     Indication: PROSTATIC ADENOMA
     Route: 048
     Dates: start: 20121215, end: 201306

REACTIONS (1)
  - Gamma-glutamyltransferase increased [Not Recovered/Not Resolved]
